FAERS Safety Report 5800330-2 (Version None)
Quarter: 2008Q3

REPORT INFORMATION
  Report Type: 
  Country: None (occurrence: None)
  Receive Date: 20080703
  Receipt Date: 20080326
  Transmission Date: 20090109
  Serious: No
  Sender: FDA-Public Use
  Company Number: A0717594A

PATIENT
  Age: 60 Year
  Sex: Female

DRUGS (7)
  1. ADVAIR DISKUS 100/50 [Suspect]
     Indication: ASTHMA
     Dosage: 2PUFF PER DAY
     Route: 055
  2. ADVAIR DISKUS 100/50 [Suspect]
     Dosage: 1PUFF TWICE PER DAY
     Route: 055
  3. FLOVENT [Suspect]
     Indication: ASTHMA
     Dosage: 1PUFF TWICE PER DAY
     Route: 055
  4. SEREVENT [Suspect]
     Indication: ASTHMA
     Dosage: 50MCG TWICE PER DAY
     Route: 055
  5. PROAIR HFA [Concomitant]
  6. PREDNISONE 50MG TAB [Concomitant]
  7. KLONOPIN [Concomitant]

REACTIONS (10)
  - BLOOD PRESSURE INCREASED [None]
  - DIZZINESS [None]
  - DRUG INEFFECTIVE [None]
  - DYSGEUSIA [None]
  - EXPIRED DRUG ADMINISTERED [None]
  - FEELING JITTERY [None]
  - MIDDLE INSOMNIA [None]
  - MUSCULOSKELETAL PAIN [None]
  - NERVOUSNESS [None]
  - THERMAL BURN [None]
